FAERS Safety Report 4632485-X (Version None)
Quarter: 2005Q2

REPORT INFORMATION
  Report Type: 
  Country: None (occurrence: None)
  Receive Date: 20050411
  Receipt Date: 20050401
  Transmission Date: 20051028
  Serious: Yes (Life-Threatening)
  Sender: FDA-Public Use
  Company Number: JP-ROCHE-401189

PATIENT
  Age: 60 Year
  Sex: Male

DRUGS (6)
  1. TAMIFLU [Suspect]
     Indication: INFLUENZA
     Route: 048
     Dates: start: 20050319, end: 20050321
  2. LOXOPROFEN SODIUM [Concomitant]
     Route: 048
     Dates: start: 20050319, end: 20050321
  3. SELBEX [Concomitant]
     Dosage: FORM: ORAL (NOS).
     Route: 048
     Dates: start: 20050319, end: 20050321
  4. NORVASC [Concomitant]
     Route: 048
  5. ADALAT [Concomitant]
     Dosage: FORM: ORAL (NOS).
     Route: 048
  6. MEXITIL [Concomitant]
     Route: 048

REACTIONS (1)
  - STEVENS-JOHNSON SYNDROME [None]
